FAERS Safety Report 6255705-7 (Version None)
Quarter: 2009Q3

REPORT INFORMATION
  Report Type: 
  Country: None (occurrence: None)
  Receive Date: 20090701
  Receipt Date: 20090618
  Transmission Date: 20100115
  Serious: Yes (Other)
  Sender: FDA-Public Use
  Company Number: CERZ-1000689

PATIENT
  Age: 3 Year
  Sex: Female

DRUGS (1)
  1. CEREZYME [Suspect]
     Indication: GAUCHER'S DISEASE
     Dosage: 1000 U, Q2W, INTRAVENOUS
     Route: 042
     Dates: start: 20051222

REACTIONS (7)
  - INTERSTITIAL LUNG DISEASE [None]
  - LYMPH GLAND INFECTION [None]
  - LYMPHADENOPATHY [None]
  - MYCOBACTERIAL INFECTION [None]
  - NECROSIS [None]
  - PULMONARY FIBROSIS [None]
  - XANTHOMA [None]
